FAERS Safety Report 6809012-1 (Version None)
Quarter: 2010Q2

REPORT INFORMATION
  Report Type: 
  Country: None (occurrence: None)
  Receive Date: 20100630
  Receipt Date: 20091113
  Transmission Date: 20101027
  Serious: No
  Sender: FDA-Public Use
  Company Number: US-PFIZER INC-2009164611

PATIENT
  Sex: Female
  Weight: 90.7 kg

DRUGS (5)
  1. XANAX [Suspect]
  2. ALPRAZOLAM [Suspect]
     Indication: TREMOR
     Dosage: 1 MG, 4X/DAY
     Route: 048
     Dates: start: 20060101
  3. SEROQUEL [Concomitant]
     Dosage: UNK
  4. NEURONTIN [Concomitant]
     Dosage: UNK
  5. DRUG, UNSPECIFIED [Concomitant]
     Dosage: UNK

REACTIONS (7)
  - ANXIETY [None]
  - DRUG INEFFECTIVE [None]
  - FATIGUE [None]
  - FEELING JITTERY [None]
  - HEADACHE [None]
  - RESTLESSNESS [None]
  - TREMOR [None]
